FAERS Safety Report 18141617 (Version 1)
Quarter: 2020Q3

REPORT INFORMATION
  Report Type: Spontaneous
  Country: US (occurrence: US)
  Receive Date: 20200812
  Receipt Date: 20200812
  Transmission Date: 20201103
  Serious: No
  Sender: FDA-Public Use
  Company Number: US-CLARUS THERAPEUTICS, INC.-2020-JATENZO-000001

PATIENT

DRUGS (1)
  1. JATENZO [Suspect]
     Active Substance: TESTOSTERONE UNDECANOATE
     Indication: PRODUCT USED FOR UNKNOWN INDICATION
     Dosage: 198 MILLIGRAM, BID
     Route: 065
     Dates: start: 20200228, end: 20200312

REACTIONS (1)
  - Pain in jaw [Unknown]
